FAERS Safety Report 6797693-0 (Version None)
Quarter: 2010Q2

REPORT INFORMATION
  Report Type: 
  Country: None (occurrence: None)
  Receive Date: 20100623
  Receipt Date: 20100611
  Transmission Date: 20101027
  Serious: Yes (Other)
  Sender: FDA-Public Use
  Company Number: 7007828

PATIENT
  Age: 52 Year
  Sex: Female

DRUGS (1)
  1. REBIF [Suspect]
     Indication: DRUG USE FOR UNKNOWN INDICATION
     Dosage: 44 MCG, 3 IN 1 WK, SUBCUTANEOUS
     Route: 058
     Dates: start: 20080124

REACTIONS (5)
  - ANAEMIA [None]
  - BLEEDING TIME PROLONGED [None]
  - CONDITION AGGRAVATED [None]
  - CONSTIPATION [None]
  - INCREASED TENDENCY TO BRUISE [None]
